FAERS Safety Report 9319940 (Version 3)
Quarter: 2013Q3

REPORT INFORMATION
  Report Type: Report from Study
  Country: CA (occurrence: CA)
  Receive Date: 20130530
  Receipt Date: 20130717
  Transmission Date: 20140515
  Serious: Yes (Other)
  Sender: FDA-Public Use
  Company Number: CA-ABBOTT-13P-028-1096005-00

PATIENT
  Sex: Female

DRUGS (2)
  1. HUMIRA [Suspect]
     Indication: CROHN^S DISEASE
     Route: 058
     Dates: start: 20120126, end: 20130509
  2. HUMIRA [Suspect]
     Route: 058
     Dates: start: 20130712

REACTIONS (5)
  - Blood urine present [Unknown]
  - Nephrolithiasis [Recovered/Resolved]
  - Kidney infection [Recovered/Resolved]
  - Malaise [Recovered/Resolved]
  - Nausea [Recovered/Resolved]
